FAERS Safety Report 8652377 (Version 4)
Quarter: 2012Q4

REPORT INFORMATION
  Report Type: 
  Country: US (occurrence: US)
  Receive Date: 20120706
  Receipt Date: 20121004
  Transmission Date: 20130627
  Serious: Yes (Death, Hospitalization)
  Sender: FDA-Public Use
  Company Number: US-B.I. PHARMACEUTICALS,INC./RIDGEFIELD-2012-BP-14735BP

PATIENT
  Age: 79 Year
  Sex: Female

DRUGS (19)
  1. PRADAXA [Suspect]
     Indication: CEREBROVASCULAR ACCIDENT PROPHYLAXIS
     Dosage: 150 mg
     Route: 048
     Dates: start: 201108, end: 20120628
  2. PRADAXA [Suspect]
     Indication: ATRIAL FIBRILLATION
  3. COREG [Suspect]
  4. ALLOPURINOL [Concomitant]
     Indication: GOUT
     Dosage: 300 mg
     Route: 048
  5. ASPIRIN [Concomitant]
     Dosage: 325 mg
     Route: 048
  6. POTASSIUM CHLORIDE [Concomitant]
     Dosage: 40 mEq
     Route: 048
  7. BUMEX [Concomitant]
     Dosage: 1 mg
     Route: 048
  8. COREG [Concomitant]
     Dosage: 12.5 mg
     Route: 048
  9. IMDUR [Concomitant]
     Indication: ISCHAEMIC CARDIOMYOPATHY
     Dosage: 30 mg
     Route: 048
  10. CRESTOR [Concomitant]
     Dosage: 10 mg
     Route: 048
  11. PROTONIX [Concomitant]
     Dosage: 40 mg
     Route: 048
  12. TYLENOL [Concomitant]
  13. LASIX [Concomitant]
     Dosage: 20 mg
     Route: 042
  14. ATIVAN [Concomitant]
  15. MILK OF MAGNESIA [Concomitant]
  16. MORPHINE [Concomitant]
     Route: 042
  17. ONDANSETRON [Concomitant]
  18. SCOPOLAMINE [Concomitant]
  19. AMBIEN [Concomitant]

REACTIONS (8)
  - Aplastic anaemia [Fatal]
  - Bone marrow failure [Unknown]
  - Pancytopenia [Unknown]
  - Chest pain [Unknown]
  - Fatigue [Unknown]
  - Malaise [Unknown]
  - Dyspnoea [Unknown]
  - Diarrhoea [Unknown]
